FAERS Safety Report 9695933 (Version 1)
Quarter: 2013Q4

REPORT INFORMATION
  Report Type: Spontaneous
  Country: US (occurrence: None)
  Receive Date: 20131118
  Receipt Date: 20131118
  Transmission Date: 20140711
  Serious: Yes (Other)
  Sender: FDA-Public Use
  Company Number: None

PATIENT
  Age: 67 None
  Sex: Male

DRUGS (4)
  1. FLUVOXAMINE MALEATE [Suspect]
     Indication: OBSESSIVE-COMPULSIVE DISORDER
     Route: 048
     Dates: start: 20130903, end: 20130925
  2. LUVOX CR [Concomitant]
  3. CLONAZEPAM [Concomitant]
  4. VITAMIN D [Concomitant]

REACTIONS (2)
  - Unevaluable event [None]
  - Product substitution issue [None]
